FAERS Safety Report 7675361-0 (Version None)
Quarter: 2011Q3

REPORT INFORMATION
  Report Type: 
  Country: None (occurrence: None)
  Receive Date: 20110810
  Receipt Date: 20110809
  Transmission Date: 20111222
  Serious: Yes (Hospitalization)
  Sender: FDA-Public Use
  Company Number: US-PFIZER INC-2011162439

PATIENT
  Sex: Female
  Weight: 129 kg

DRUGS (22)
  1. NAPROXEN [Suspect]
     Indication: OSTEOARTHRITIS
     Dosage: UNK
     Route: 048
     Dates: start: 20080820
  2. NAPROXEN [Suspect]
     Dosage: UNK
     Route: 048
     Dates: start: 20080820
  3. PLACEBO [Suspect]
     Indication: OSTEOARTHRITIS
     Dosage: UNK
     Route: 048
     Dates: start: 20080820
  4. IBUPROFEN [Suspect]
     Indication: OSTEOARTHRITIS
     Dosage: UNK
     Route: 048
     Dates: start: 20080820
  5. LORATADINE [Concomitant]
     Dosage: UNK
     Route: 048
     Dates: start: 20080806
  6. POTASSIUM CHLORIDE [Concomitant]
     Dosage: UNK
     Route: 048
     Dates: start: 20090625
  7. MIRAPEX [Concomitant]
     Dosage: UNK
     Route: 048
     Dates: start: 20110421
  8. ZOLOFT [Concomitant]
     Dosage: UNK
     Route: 048
     Dates: start: 20100301
  9. CELECOXIB [Suspect]
     Indication: OSTEOARTHRITIS
     Dosage: UNK
     Route: 048
     Dates: start: 20080820
  10. ADVAIR DISKUS 100/50 [Concomitant]
     Dosage: UNK
     Route: 055
     Dates: start: 20090417
  11. LASIX [Concomitant]
     Dosage: UNK
     Route: 048
     Dates: start: 20090625
  12. LYRICA [Suspect]
     Dosage: UNK
     Route: 048
     Dates: start: 20110523, end: 20110601
  13. NEXIUM [Concomitant]
     Indication: GASTROOESOPHAGEAL REFLUX DISEASE
     Dosage: 40 MG, 1X/DAY
     Route: 048
     Dates: start: 20080820
  14. EFFEXOR [Concomitant]
     Dosage: UNK
     Route: 048
     Dates: start: 20091002
  15. GLUCOPHAGE [Concomitant]
     Dosage: UNK
     Route: 048
     Dates: start: 20060906
  16. IBUPROFEN [Suspect]
     Dosage: UNK
     Route: 048
     Dates: start: 20080820
  17. BLINDED NO SUBJECT DRUG [Suspect]
     Indication: OSTEOARTHRITIS
     Dosage: UNK
     Route: 048
     Dates: start: 20080820
  18. ASPIRIN [Concomitant]
     Dosage: UNK
     Route: 048
     Dates: start: 20080226
  19. FERROUS SULFATE [Concomitant]
  20. VESICARE [Concomitant]
     Dosage: UNK
     Route: 048
     Dates: start: 20081031
  21. ACCOLATE [Concomitant]
     Dosage: UNK
     Route: 048
     Dates: start: 20000101
  22. TRAMADOL [Concomitant]
     Dosage: UNK
     Route: 048
     Dates: start: 20090114

REACTIONS (2)
  - CONFUSIONAL STATE [None]
  - HYPOAESTHESIA [None]
